FAERS Safety Report 6443446-2 (Version None)
Quarter: 2009Q4

REPORT INFORMATION
  Report Type: 
  Country: None (occurrence: None)
  Receive Date: 20091113
  Receipt Date: 20091105
  Transmission Date: 20100525
  Serious: Yes (Hospitalization)
  Sender: FDA-Public Use
  Company Number: 424850

PATIENT
  Sex: Female

DRUGS (3)
  1. VANCOMYCIN [Suspect]
     Indication: ENDOPHTHALMITIS
     Dosage: INTRAVENOUS
     Route: 042
  2. (PIPERACILLIN W/TAZOBACTAM) [Suspect]
     Indication: ENDOPHTHALMITIS
     Dosage: INTRAVENOUS
     Route: 042
  3. PREDNISONE [Concomitant]

REACTIONS (4)
  - CONDITION AGGRAVATED [None]
  - EYE EXCISION [None]
  - SYSTEMIC LUPUS ERYTHEMATOSUS [None]
  - TACHYCARDIA [None]
